FAERS Safety Report 9430818 (Version 1)
Quarter: 2013Q3

REPORT INFORMATION
  Report Type: Spontaneous
  Country: ES (occurrence: None)
  Receive Date: 20130726
  Receipt Date: 20130726
  Transmission Date: 20140515
  Serious: Yes (Death, Other)
  Sender: FDA-Public Use
  Company Number: SYM-2013-06855

PATIENT
  Age: 62 Year
  Sex: Female

DRUGS (6)
  1. FLUOROURACIL (FLUOROURACIL) (FLUOROURACIL) [Suspect]
     Indication: ADENOCARCINOMA OF COLON
     Dosage: 400 MG/M2, EVERY CYCLE, INTRAVENOUS (NOT OTHERWISE SPECIFIED)
  2. OXALIPLATIN (OXALIPLATIN) (OXALIPLATIN) [Suspect]
     Indication: ADENOCARCINOMA OF COLON
     Dosage: 85 MG/M2, EVERY CYCLE, INTRAVENOUS (NOT OTHERWISE SPECIFIED)
  3. BRIVUDINE [Suspect]
     Indication: HERPES ZOSTER
     Route: 048
  4. BEVACIZUMAB [Concomitant]
  5. LEUCOVORIN (FOLINIC ACID) (FOLINIC ACID) [Concomitant]
  6. FAMCICLOVIR (FAMCICLOVIR) (FAMCICLOVIR) [Concomitant]

REACTIONS (12)
  - Leukopenia [None]
  - General physical health deterioration [None]
  - Thrombocytopenia [None]
  - Pigmentation disorder [None]
  - Alopecia [None]
  - Dysphagia [None]
  - Abdominal pain [None]
  - Toxicity to various agents [None]
  - Drug interaction [None]
  - Neurotoxicity [None]
  - Acute respiratory failure [None]
  - Sepsis [None]
